FAERS Safety Report 23846413 (Version 1)
Quarter: 2024Q2

REPORT INFORMATION
  Report Type: Report from Study
  Country: IT (occurrence: IT)
  Receive Date: 20240513
  Receipt Date: 20240513
  Transmission Date: 20240716
  Serious: No
  Sender: FDA-Public Use
  Company Number: IT-SANDOZ-SDZ2024IT047320

PATIENT
  Age: 4 Year
  Sex: Male
  Weight: 13 kg

DRUGS (1)
  1. OMNITROPE [Suspect]
     Active Substance: SOMATROPIN
     Indication: Growth hormone deficiency
     Dosage: 0.4 MG
     Route: 058
     Dates: start: 20231109

REACTIONS (3)
  - Incorrect dose administered [Unknown]
  - Device occlusion [Unknown]
  - Device issue [Unknown]

NARRATIVE: CASE EVENT DATE: 20240506
